FAERS Safety Report 14060359 (Version 3)
Quarter: 2018Q2

REPORT INFORMATION
  Report Type: Spontaneous
  Country: US (occurrence: US)
  Receive Date: 20171006
  Receipt Date: 20180411
  Transmission Date: 20180711
  Serious: No
  Sender: FDA-Public Use
  Company Number: US-AMGEN-USASP2017140546

PATIENT
  Age: 81 Year
  Sex: Female

DRUGS (10)
  1. VITAMIN D [Concomitant]
     Active Substance: CHOLECALCIFEROL
     Dosage: 50000 UNIT, QWK
  2. LOSARTAN. [Concomitant]
     Active Substance: LOSARTAN
  3. LASIX [Concomitant]
     Active Substance: FUROSEMIDE
  4. CODEINE [Concomitant]
     Active Substance: CODEINE
  5. METOPROLOL. [Concomitant]
     Active Substance: METOPROLOL
  6. PROLIA [Suspect]
     Active Substance: DENOSUMAB
     Indication: OSTEOPOROSIS POSTMENOPAUSAL
     Dosage: 60 MG, Q6MO
     Route: 065
  7. ALPRAZOLAM. [Concomitant]
     Active Substance: ALPRAZOLAM
  8. POTASSIUM [Concomitant]
     Active Substance: POTASSIUM
  9. TIZANIDINE. [Concomitant]
     Active Substance: TIZANIDINE
  10. ASPIRIN. [Concomitant]
     Active Substance: ASPIRIN
     Dosage: 81 MG, UNK

REACTIONS (4)
  - Malaise [Unknown]
  - Depressed mood [Unknown]
  - Fatigue [Unknown]
  - Vitamin D deficiency [Unknown]
